FAERS Safety Report 19299440 (Version 2)
Quarter: 2021Q2

REPORT INFORMATION
  Report Type: Spontaneous
  Country: ES (occurrence: ES)
  Receive Date: 20210524
  Receipt Date: 20210622
  Transmission Date: 20210717
  Serious: Yes (Other)
  Sender: FDA-Public Use
  Company Number: ES-PFIZER INC-2021532302

PATIENT
  Age: 58 Year
  Sex: Female

DRUGS (14)
  1. DOLOCATIL [Concomitant]
     Active Substance: ACETAMINOPHEN
     Indication: PAIN
     Dosage: 1 DF, 1X/DAY, DINNER
  2. OMEPRAZOLE. [Concomitant]
     Active Substance: OMEPRAZOLE
     Indication: GASTRIC DISORDER
     Dosage: 20 MG, 1X/DAY
  3. QUETIAPINA [QUETIAPINE] [Concomitant]
     Active Substance: QUETIAPINE
     Dosage: UNK, 1X/DAY
  4. ESIPRAM [Concomitant]
     Dosage: 1 DF, 1X/DAY, IN THE MORNING
  5. SOMAVERT [Suspect]
     Active Substance: PEGVISOMANT
     Dosage: 20 MG, DAILY
     Route: 058
     Dates: start: 20151210
  6. LEVOTIROXINA [LEVOTHYROXINE] [Concomitant]
     Active Substance: LEVOTHYROXINE
     Indication: THYROID MASS
     Dosage: 1 DF, 1X/DAY
  7. TIMOGEL [Concomitant]
     Active Substance: TIMOLOL MALEATE
     Indication: INTRAOCULAR PRESSURE INCREASED
     Dosage: 1 DF, 1X/DAY, MORNING
  8. TRAMADOL. [Concomitant]
     Active Substance: TRAMADOL
     Indication: PAIN
     Dosage: 1 DF, 2X/DAY, BREAKFAST, LUNCH
  9. AVAMYS [Concomitant]
     Active Substance: FLUTICASONE FUROATE
     Indication: SINUSITIS
     Dosage: 1 DF, 2X/DAY
  10. MINURIN FLAS [Concomitant]
     Indication: MICTURITION DISORDER
     Dosage: 1 DF, 3X/DAY
  11. NEURONTIN [Concomitant]
     Active Substance: GABAPENTIN
     Dosage: 300 MG, 1X/DAY
  12. LORAZEPAM. [Concomitant]
     Active Substance: LORAZEPAM
     Dosage: 1 DF, 1X/DAY
  13. OSVICAL [Concomitant]
     Indication: BONE DISORDER
     Dosage: 1 DF, 1X/DAY
  14. TRAVATAN [Concomitant]
     Active Substance: TRAVOPROST
     Indication: INTRAOCULAR PRESSURE INCREASED
     Dosage: 1 DROP, 1X/DAY, NIGHT

REACTIONS (8)
  - Weight increased [Not Recovered/Not Resolved]
  - Gait disturbance [Recovering/Resolving]
  - Neoplasm progression [Recovering/Resolving]
  - Stress [Unknown]
  - Device issue [Unknown]
  - Pain [Not Recovered/Not Resolved]
  - Mobility decreased [Unknown]
  - Incorrect dose administered [Unknown]
